FAERS Safety Report 21946130 (Version 1)
Quarter: 2023Q1

REPORT INFORMATION
  Report Type: Spontaneous
  Country: RU (occurrence: None)
  Receive Date: 20230202
  Receipt Date: 20230202
  Transmission Date: 20230417
  Serious: No
  Sender: FDA-Public Use
  Company Number: RU-ROCHE-3274231

PATIENT
  Age: 33 Year
  Sex: Female

DRUGS (3)
  1. OCREVUS [Suspect]
     Active Substance: OCRELIZUMAB
     Indication: Multiple sclerosis
     Dosage: SECOND DOSE: /NOV/2021
     Route: 065
  2. METIPRED [Concomitant]
     Active Substance: METHYLPREDNISOLONE
     Indication: Visual impairment
  3. FINGOLIMOD [Concomitant]
     Active Substance: FINGOLIMOD
     Indication: Multiple sclerosis
     Dates: start: 202010

REACTIONS (5)
  - Maternal exposure before pregnancy [Unknown]
  - Anaemia [Unknown]
  - Serum ferritin decreased [Unknown]
  - Blood thyroid stimulating hormone decreased [Unknown]
  - Coronavirus infection [Unknown]

NARRATIVE: CASE EVENT DATE: 20210101
